FAERS Safety Report 9407214 (Version 1)
Quarter: 2013Q3

REPORT INFORMATION
  Report Type: Spontaneous
  Country: IT (occurrence: IT)
  Receive Date: 20130718
  Receipt Date: 20130718
  Transmission Date: 20140515
  Serious: Yes (Hospitalization)
  Sender: FDA-Public Use
  Company Number: IT-BAYER-2013-085181

PATIENT
  Age: 79 Year
  Sex: Male

DRUGS (3)
  1. CIPROXIN 500 MG FILM-COATED TABLETS [Suspect]
     Indication: RESPIRATORY TRACT INFECTION
     Dosage: 1000 MG, ONCE
     Route: 048
     Dates: start: 20130609, end: 20130609
  2. RANITIDINE [Concomitant]
     Dosage: DAILY DOSE 300 MG
     Route: 048
  3. TAMSULOSIN [Concomitant]
     Dosage: UNK
     Route: 048

REACTIONS (1)
  - Gastritis [Unknown]
